FAERS Safety Report 15371194 (Version 1)
Quarter: 2018Q3

REPORT INFORMATION
  Report Type: Spontaneous
  Country: ES (occurrence: ES)
  Receive Date: 20180911
  Receipt Date: 20180911
  Transmission Date: 20181010
  Serious: Yes (Other)
  Sender: FDA-Public Use
  Company Number: ES-009507513-1809ESP001967

PATIENT
  Sex: Female
  Weight: 57 kg

DRUGS (1)
  1. SINGULAIR [Suspect]
     Active Substance: MONTELUKAST SODIUM
     Indication: DYSPNOEA EXERTIONAL
     Dosage: I HAVE TAKEN ONE TABLET AT NIGHT FOR 4 DAYS AND IT CAUSED ME THE ADVERSE EVENT
     Route: 048
     Dates: start: 20180821, end: 20180825

REACTIONS (5)
  - Anxiety [Recovering/Resolving]
  - Somnolence [Recovering/Resolving]
  - Depression [Recovering/Resolving]
  - Depressed mood [Recovering/Resolving]
  - Malaise [Recovering/Resolving]

NARRATIVE: CASE EVENT DATE: 20180823
